FAERS Safety Report 6683832-9 (Version None)
Quarter: 2010Q2

REPORT INFORMATION
  Report Type: 
  Country: None (occurrence: None)
  Receive Date: 20100416
  Receipt Date: 20100409
  Transmission Date: 20101027
  Serious: Yes (Other)
  Sender: FDA-Public Use
  Company Number: CA-TEVA-230839USA

PATIENT
  Sex: Female

DRUGS (2)
  1. PIMOZIDE TABLETS [Suspect]
     Indication: SCHIZOPHRENIA
     Dosage: 4MG 1 IN 1 DAY, 6MG 1 IN 1 HOUR OF SLEEP
     Route: 048
  2. PIMOZIDE TABLETS [Concomitant]

REACTIONS (11)
  - DRUG INEFFECTIVE [None]
  - HAEMATOCRIT DECREASED [None]
  - HAEMOGLOBIN DECREASED [None]
  - LYMPHOCYTE COUNT INCREASED [None]
  - MONOCYTE COUNT INCREASED [None]
  - NEUTROPHIL COUNT DECREASED [None]
  - NEUTROPHIL COUNT INCREASED [None]
  - RED BLOOD CELL COUNT DECREASED [None]
  - RED CELL DISTRIBUTION WIDTH INCREASED [None]
  - WHITE BLOOD CELL COUNT DECREASED [None]
  - WHITE BLOOD CELL COUNT INCREASED [None]
